FAERS Safety Report 5000336-X (Version None)
Quarter: 2006Q2

REPORT INFORMATION
  Report Type: 
  Country: None (occurrence: None)
  Receive Date: 20060511
  Receipt Date: 20060130
  Transmission Date: 20061013
  Serious: Yes (Hospitalization)
  Sender: FDA-Public Use
  Company Number: US-MERCK-0602USA00084

PATIENT
  Age: 59 Year
  Sex: Female
  Weight: 61 kg

DRUGS (12)
  1. VIOXX [Suspect]
     Indication: BURSITIS
     Route: 048
     Dates: start: 20020810, end: 20040110
  2. PREMPRO [Concomitant]
     Indication: HORMONE REPLACEMENT THERAPY
     Route: 065
     Dates: start: 20020902, end: 20031101
  3. PAXIL [Concomitant]
     Route: 065
  4. NORVASC [Concomitant]
     Indication: CARDIAC DISORDER
     Route: 065
     Dates: start: 20020910
  5. HYDROCHLOROTHIAZIDE [Concomitant]
     Indication: HYPERTENSION
     Route: 065
     Dates: start: 20020910
  6. XANAX [Concomitant]
     Indication: NERVOUSNESS
     Route: 065
  7. PRAVACHOL [Concomitant]
     Route: 065
  8. ZOCOR [Concomitant]
     Route: 065
  9. BEXTRA [Concomitant]
     Indication: BURSITIS
     Route: 065
     Dates: start: 20020101, end: 20020101
  10. CELEBREX [Concomitant]
     Indication: BURSITIS
     Route: 065
     Dates: start: 20020901, end: 20020901
  11. ECOTRIN [Concomitant]
     Indication: PAIN
     Route: 065
     Dates: start: 20040211
  12. ATENOLOL [Concomitant]
     Route: 065

REACTIONS (5)
  - ACUTE MYOCARDIAL INFARCTION [None]
  - CHEST PAIN [None]
  - HYPERLIPIDAEMIA [None]
  - HYPERTENSION [None]
  - OSTEOARTHRITIS [None]
